FAERS Safety Report 24942387 (Version 1)
Quarter: 2025Q1

REPORT INFORMATION
  Report Type: Spontaneous
  Country: CA (occurrence: CA)
  Receive Date: 20250207
  Receipt Date: 20250207
  Transmission Date: 20250409
  Serious: Yes (Other)
  Sender: PFIZER
  Company Number: CA-PFIZER INC-202500027286

PATIENT
  Age: 69 Year
  Sex: Female

DRUGS (17)
  1. XELJANZ [Suspect]
     Active Substance: TOFACITINIB CITRATE
     Indication: Rheumatoid arthritis
     Dosage: 5 MG, 2X/DAY
     Route: 048
     Dates: start: 20240207
  2. ASPIRIN [Concomitant]
     Active Substance: ASPIRIN
  3. AMITRIPTYLINE [Concomitant]
     Active Substance: AMITRIPTYLINE
  4. AZATHIOPRINE [Concomitant]
     Active Substance: AZATHIOPRINE
  5. CALCIUM [Concomitant]
     Active Substance: CALCIUM
  6. CLONIDINE [Concomitant]
     Active Substance: CLONIDINE
  7. DULOXETINE [Concomitant]
     Active Substance: DULOXETINE
  8. ESOMEPRAZOLE [Concomitant]
     Active Substance: ESOMEPRAZOLE
  9. FOLIC ACID [Concomitant]
     Active Substance: FOLIC ACID
  10. GABAPENTIN [Concomitant]
     Active Substance: GABAPENTIN
  11. METHOTREXATE [Concomitant]
     Active Substance: METHOTREXATE
  12. PENTOXIFYLLINE [Concomitant]
     Active Substance: PENTOXIFYLLINE
  13. ROSUVASTATIN [Concomitant]
     Active Substance: ROSUVASTATIN
  14. RAMIPRIL [Concomitant]
     Active Substance: RAMIPRIL
  15. CHOLECALCIFEROL [Concomitant]
     Active Substance: CHOLECALCIFEROL
  16. VITAMIN B12 [Concomitant]
     Active Substance: CYANOCOBALAMIN
  17. ZOPICLONE [Concomitant]
     Active Substance: ZOPICLONE

REACTIONS (2)
  - Myocardial infarction [Unknown]
  - Chronic kidney disease [Unknown]

NARRATIVE: CASE EVENT DATE: 20240501
